FAERS Safety Report 4509580-9 (Version None)
Quarter: 2004Q4

REPORT INFORMATION
  Report Type: 
  Country: None (occurrence: None)
  Receive Date: 20041119
  Receipt Date: 20041102
  Transmission Date: 20050328
  Serious: Yes (Other)
  Sender: FDA-Public Use
  Company Number: USA041182933

PATIENT
  Age: 63 Year
  Sex: Female

DRUGS (8)
  1. HUMULIN 70/30 [Suspect]
     Indication: DIABETES MELLITUS
     Dosage: 48 U DAY
  2. PREDNISONE [Concomitant]
  3. METHOTREXATE [Concomitant]
  4. PREVACID [Concomitant]
  5. LISINOPRIL [Concomitant]
  6. ZOCOR (SIMVASTATIN RATIOPHARM) [Concomitant]
  7. AMITRIPTYLINE HCL [Concomitant]
  8. NICODERM [Concomitant]

REACTIONS (4)
  - ANEURYSM [None]
  - CEREBROVASCULAR ACCIDENT [None]
  - GLYCOSYLATED HAEMOGLOBIN INCREASED [None]
  - RHEUMATOID ARTHRITIS [None]
